FAERS Safety Report 18575253 (Version 3)
Quarter: 2021Q1

REPORT INFORMATION
  Report Type: Other
  Country: CA (occurrence: CA)
  Receive Date: 20201203
  Receipt Date: 20210324
  Transmission Date: 20210419
  Serious: Yes (Hospitalization)
  Sender: FDA-Public Use
  Company Number: CA-ROCHE-2720932

PATIENT
  Age: 51 Year
  Sex: Male

DRUGS (7)
  1. ACTEMRA [Suspect]
     Active Substance: TOCILIZUMAB
     Dosage: DOSE VARIED ACCORDING TO WEIGHT ON DAY OF INFUSION. 8 MG/KG
     Route: 042
     Dates: start: 20120508, end: 20130917
  2. ACTEMRA [Suspect]
     Active Substance: TOCILIZUMAB
     Indication: RHEUMATOID ARTHRITIS
     Route: 058
     Dates: start: 20141202, end: 201508
  3. ACTEMRA [Suspect]
     Active Substance: TOCILIZUMAB
     Indication: RHEUMATOID ARTHRITIS
     Route: 042
     Dates: start: 20110824, end: 20120411
  4. ACTEMRA [Suspect]
     Active Substance: TOCILIZUMAB
     Dosage: ONGOING: DATE OF SWITCH TO 800MG UNKNOWN AS NOT ALL PIRS RECEIVED. PRESCRIPTION RECEIVED IN 2016 NOT
     Route: 042
     Dates: start: 20170117
  5. ACTEMRA [Suspect]
     Active Substance: TOCILIZUMAB
     Route: 042
     Dates: start: 20150831
  6. ACTEMRA [Suspect]
     Active Substance: TOCILIZUMAB
     Route: 042
     Dates: start: 20131011, end: 20161219
  7. ACLASTA [Concomitant]
     Active Substance: ZOLEDRONIC ACID

REACTIONS (5)
  - Urinary tract infection [Unknown]
  - Prostatitis Escherichia coli [Unknown]
  - Cystitis escherichia [Unknown]
  - Back pain [Not Recovered/Not Resolved]
  - Abdominal pain [Not Recovered/Not Resolved]

NARRATIVE: CASE EVENT DATE: 2020
